FAERS Safety Report 7946457-0 (Version None)
Quarter: 2011Q4

REPORT INFORMATION
  Report Type: 
  Country: None (occurrence: None)
  Receive Date: 20111129
  Receipt Date: 20111123
  Transmission Date: 20120403
  Serious: Yes (Hospitalization)
  Sender: FDA-Public Use
  Company Number: US-ABBOTT-09P-163-0498327-00

PATIENT
  Sex: Female
  Weight: 79.45 kg

DRUGS (13)
  1. ACIPHEX [Concomitant]
     Indication: GASTROOESOPHAGEAL REFLUX DISEASE
     Route: 048
     Dates: start: 20080429, end: 20081223
  2. ZANTAC [Concomitant]
     Indication: DYSPEPSIA
     Route: 048
     Dates: start: 20080701, end: 20081223
  3. HUMIRA [Suspect]
     Indication: CROHN'S DISEASE
     Route: 050
     Dates: start: 20080429, end: 20081126
  4. FOLIC ACID [Concomitant]
     Indication: VITAMIN SUPPLEMENTATION
     Route: 048
     Dates: start: 20080626, end: 20081001
  5. MULTI-VITAMINS [Concomitant]
     Indication: PRODUCT USED FOR UNKNOWN INDICATION
     Route: 048
     Dates: start: 20080429, end: 20081223
  6. CLARITIN [Concomitant]
     Indication: HYPERSENSITIVITY
     Route: 048
     Dates: start: 20080918, end: 20081115
  7. FLU VACCINE [Concomitant]
     Indication: PRODUCT USED FOR UNKNOWN INDICATION
     Route: 050
     Dates: start: 20081030, end: 20081030
  8. COLAZAL [Concomitant]
     Indication: CROHN'S DISEASE
     Route: 048
     Dates: start: 20080429, end: 20081223
  9. CALCIUM CARBONATE [Concomitant]
     Indication: DYSPEPSIA
     Dosage: 2-4 TUMS
     Route: 048
     Dates: start: 20080429, end: 20080715
  10. ASPIRIN [Concomitant]
     Indication: THROMBOSIS PROPHYLAXIS
     Route: 048
     Dates: start: 20080429, end: 20080625
  11. PROBIOTICS [Concomitant]
     Indication: CROHN'S DISEASE
     Route: 048
     Dates: start: 20080422, end: 20080715
  12. AMBIEN [Concomitant]
     Indication: INSOMNIA
     Route: 048
     Dates: start: 20081103, end: 20081223
  13. ACETAMINOPHEN [Concomitant]
     Indication: PAIN
     Route: 048
     Dates: start: 20080429, end: 20080529

REACTIONS (3)
  - PREMATURE LABOUR [None]
  - PRE-ECLAMPSIA [None]
  - HYPERTENSION [None]
